FAERS Safety Report 8302279-2 (Version None)
Quarter: 2012Q2

REPORT INFORMATION
  Report Type: 
  Country: None (occurrence: None)
  Receive Date: 20120420
  Receipt Date: 20120411
  Transmission Date: 20120825
  Serious: Yes (Hospitalization)
  Sender: FDA-Public Use
  Company Number: JP-AMGEN-JPNSP2012012390

PATIENT
  Age: 73 Year
  Sex: Female

DRUGS (2)
  1. PROMACTA [Concomitant]
     Dosage: 37.5 MG, UNK
     Route: 048
  2. ROMIPLATE [Suspect]
     Indication: IDIOPATHIC THROMBOCYTOPENIC PURPURA
     Dosage: 5 MUG/KG, UNK
     Route: 058
     Dates: start: 20111207

REACTIONS (3)
  - THERAPEUTIC RESPONSE DECREASED [None]
  - ANTIBODY TEST [None]
  - PLATELET COUNT DECREASED [None]
